FAERS Safety Report 6314200-7 (Version None)
Quarter: 2009Q3

REPORT INFORMATION
  Report Type: 
  Country: None (occurrence: None)
  Receive Date: 20090817
  Receipt Date: 20090804
  Transmission Date: 20100115
  Serious: Yes (Other)
  Sender: FDA-Public Use
  Company Number: 2009009194

PATIENT
  Sex: Female

DRUGS (2)
  1. NUVIGIL [Suspect]
     Dosage: ORAL
     Route: 048
  2. SELEGILINE HCL [Suspect]

REACTIONS (1)
  - STEVENS-JOHNSON SYNDROME [None]
